FAERS Safety Report 21646751 (Version 2)
Quarter: 2022Q4

REPORT INFORMATION
  Report Type: Spontaneous
  Country: IT (occurrence: IT)
  Receive Date: 20221127
  Receipt Date: 20221227
  Transmission Date: 20230113
  Serious: Yes (Death, Hospitalization)
  Sender: FDA-Public Use
  Company Number: IT-TEVA-2022-IT-2829075

PATIENT
  Age: 14 Year
  Sex: Male

DRUGS (8)
  1. METHOTREXATE [Suspect]
     Active Substance: METHOTREXATE
     Indication: Metastases to meninges
     Route: 037
  2. METHOTREXATE [Suspect]
     Active Substance: METHOTREXATE
     Indication: Malignant melanoma
  3. VINCRISTINE [Suspect]
     Active Substance: VINCRISTINE
     Indication: Malignant melanoma
     Route: 042
  4. VINCRISTINE [Suspect]
     Active Substance: VINCRISTINE
     Indication: Malignant melanoma
  5. DACARBAZINE [Suspect]
     Active Substance: DACARBAZINE
     Indication: Metastases to meninges
     Route: 042
  6. DACARBAZINE [Suspect]
     Active Substance: DACARBAZINE
     Indication: Malignant melanoma
  7. VEMURAFENIB [Suspect]
     Active Substance: VEMURAFENIB
     Indication: Metastases to meninges
     Route: 065
  8. VEMURAFENIB [Suspect]
     Active Substance: VEMURAFENIB
     Indication: Malignant melanoma

REACTIONS (1)
  - Drug ineffective [Fatal]
